FAERS Safety Report 9504263 (Version 1)
Quarter: 2013Q3

REPORT INFORMATION
  Report Type: Spontaneous
  Country: US (occurrence: US)
  Receive Date: 20130906
  Receipt Date: 20130906
  Transmission Date: 20140515
  Serious: Yes (Other)
  Sender: FDA-Public Use
  Company Number: US-BIOGENIDEC-2013BI084980

PATIENT
  Age: 39 Year
  Sex: Female
  Weight: 56 kg

DRUGS (8)
  1. TECFIDERA [Suspect]
     Indication: MULTIPLE SCLEROSIS
  2. AVONEX [Concomitant]
     Indication: MULTIPLE SCLEROSIS
     Route: 030
     Dates: end: 20130729
  3. PAXIL [Concomitant]
  4. POTASSIUM [Concomitant]
  5. IRON [Concomitant]
  6. MAGNESIUM [Concomitant]
  7. VITAMIN B 12 [Concomitant]
  8. ASPIRIN [Concomitant]

REACTIONS (9)
  - Fungal oesophagitis [Recovered/Resolved]
  - Gastrointestinal disorder [Recovered/Resolved]
  - Abdominal pain [Recovered/Resolved]
  - Vomiting [Recovered/Resolved]
  - Diarrhoea [Recovered/Resolved]
  - Nausea [Recovered/Resolved]
  - Oesophageal spasm [Recovered/Resolved]
  - Gastritis [Recovered/Resolved]
  - Flushing [Recovered/Resolved]
